FAERS Safety Report 16379329 (Version 1)
Quarter: 2019Q2

REPORT INFORMATION
  Report Type: Spontaneous
  Country: NZ (occurrence: NZ)
  Receive Date: 20190531
  Receipt Date: 20190531
  Transmission Date: 20190711
  Serious: Yes (Hospitalization)
  Sender: FDA-Public Use
  Company Number: NZ-WHANIN PHARM. CO., LTD.-2019M1051354

PATIENT
  Age: 15 Year
  Sex: Male

DRUGS (1)
  1. CLOZARIL [Suspect]
     Active Substance: CLOZAPINE
     Indication: SCHIZOPHRENIA
     Dosage: UNK
     Route: 048
     Dates: start: 20170922

REACTIONS (2)
  - Schizophrenia [Unknown]
  - Product use issue [Unknown]

NARRATIVE: CASE EVENT DATE: 20170922
